FAERS Safety Report 6209244-X (Version None)
Quarter: 2009Q2

REPORT INFORMATION
  Report Type: 
  Country: None (occurrence: None)
  Receive Date: 20090529
  Receipt Date: 20090520
  Transmission Date: 20091009
  Serious: Yes (Hospitalization)
  Sender: FDA-Public Use
  Company Number: US-JNJFOC-20090304669

PATIENT
  Sex: Female
  Weight: 123 kg

DRUGS (41)
  1. GOLIMUMAB [Suspect]
     Route: 058
  2. GOLIMUMAB [Suspect]
     Route: 058
  3. GOLIMUMAB [Suspect]
     Route: 058
  4. GOLIMUMAB [Suspect]
     Route: 058
  5. GOLIMUMAB [Suspect]
     Route: 058
  6. GOLIMUMAB [Suspect]
     Indication: RHEUMATOID ARTHRITIS
     Route: 058
  7. GOLIMUMAB [Suspect]
     Route: 042
  8. GOLIMUMAB [Suspect]
     Route: 042
  9. GOLIMUMAB [Suspect]
     Route: 042
  10. GOLIMUMAB [Suspect]
     Route: 042
  11. PLACEBO [Suspect]
     Dosage: WEEK 16
     Route: 042
  12. PLACEBO [Suspect]
     Route: 042
  13. PLACEBO [Suspect]
     Indication: RHEUMATOID ARTHRITIS
     Route: 042
  14. METHOTREXATE [Suspect]
     Route: 048
     Dates: start: 20070504, end: 20080704
  15. METHOTREXATE [Suspect]
     Route: 048
     Dates: start: 20070504, end: 20080704
  16. METHOTREXATE [Suspect]
     Indication: RHEUMATOID ARTHRITIS
     Route: 048
     Dates: start: 20070504, end: 20080704
  17. ACIPHEX [Concomitant]
     Route: 048
  18. ACTONEL [Concomitant]
     Route: 048
  19. ASPIRIN [Concomitant]
     Route: 048
  20. COMBIVENT [Concomitant]
     Route: 055
  21. COZAAR [Concomitant]
     Route: 048
  22. DOXYCYCLINE [Concomitant]
     Route: 048
  23. FEXOFENADINE [Concomitant]
     Route: 048
  24. FOLIC ACID [Concomitant]
     Indication: RHEUMATOID ARTHRITIS
     Route: 048
  25. FUROSEMIDE [Concomitant]
     Route: 048
  26. HYDROCODONE BITARTRATE [Concomitant]
     Indication: RHEUMATOID ARTHRITIS
     Route: 048
  27. LEVAQUIN [Concomitant]
     Route: 048
  28. LEVAQUIN [Concomitant]
     Route: 048
  29. MYCOLOG [Concomitant]
     Route: 061
  30. NEURONTIN [Concomitant]
     Route: 048
  31. NEXIUM [Concomitant]
     Route: 048
  32. NIACIN [Concomitant]
     Route: 048
  33. OXYGEN [Concomitant]
     Route: 045
  34. PHENERGAN [Concomitant]
     Route: 048
  35. POTASSIUM CHLORIDE [Concomitant]
     Route: 048
  36. PREDNISONE [Concomitant]
     Indication: RHEUMATOID ARTHRITIS
     Route: 048
  37. PULMACORT RESPULES [Concomitant]
     Route: 055
  38. SKELAXIN [Concomitant]
     Route: 048
  39. SYNTHROID [Concomitant]
     Route: 048
  40. XOPENEX [Concomitant]
     Route: 055
  41. ZETIA [Concomitant]
     Route: 048

REACTIONS (4)
  - CELLULITIS [None]
  - CHRONIC OBSTRUCTIVE PULMONARY DISEASE [None]
  - OEDEMA [None]
  - RESPIRATORY FAILURE [None]
